FAERS Safety Report 5385211-3 (Version None)
Quarter: 2007Q3

REPORT INFORMATION
  Report Type: 
  Country: None (occurrence: None)
  Receive Date: 20070706
  Receipt Date: 20070706
  Transmission Date: 20080115
  Serious: Yes (Other)
  Sender: FDA-Public Use
  Company Number: None

PATIENT
  Age: 60 Year
  Sex: Female

DRUGS (14)
  1. FENTANYL TRANSDERMAL SYSTEM [Suspect]
     Indication: BONE DISORDER
     Dosage: 75MCG/HR Q 72 HOURS TOPICALLY
     Route: 061
  2. FENTANYL TRANSDERMAL SYSTEM [Suspect]
     Indication: OSTEOARTHRITIS
     Dosage: 75MCG/HR Q 72 HOURS TOPICALLY
     Route: 061
  3. FENTANYL TRANSDERMAL SYSTEM [Suspect]
     Indication: OSTEOPOROSIS
     Dosage: 75MCG/HR Q 72 HOURS TOPICALLY
     Route: 061
  4. OXYCODONE HCL [Concomitant]
  5. CELEBREX [Concomitant]
  6. NORVASC [Concomitant]
  7. NITROFURANTOIN [Concomitant]
  8. DIOVAN [Concomitant]
  9. NEXIUM [Concomitant]
  10. LYRICA [Concomitant]
  11. LANOXIN [Concomitant]
  12. VITAMIN B-12 [Concomitant]
  13. XANAX [Concomitant]
  14. SOMA [Concomitant]

REACTIONS (1)
  - PHARMACEUTICAL PRODUCT COMPLAINT [None]
